FAERS Safety Report 11318410 (Version 4)
Quarter: 2015Q4

REPORT INFORMATION
  Report Type: Spontaneous
  Country: US (occurrence: US)
  Receive Date: 20150728
  Receipt Date: 20151016
  Transmission Date: 20160304
  Serious: Yes (Other)
  Sender: FDA-Public Use
  Company Number: US-009507513-1507USA005641

PATIENT
  Age: 62 Year
  Sex: Female
  Weight: 98 kg

DRUGS (9)
  1. ZOCOR [Suspect]
     Active Substance: SIMVASTATIN
     Indication: BLOOD CHOLESTEROL ABNORMAL
     Dosage: 10 MG, UNK
     Route: 048
     Dates: start: 2005
  2. LYRICA [Suspect]
     Active Substance: PREGABALIN
     Dosage: 75 MG, THREE TIMES A DAY
     Route: 048
  3. NEURONTIN [Suspect]
     Active Substance: GABAPENTIN
     Indication: NEUROPATHY PERIPHERAL
     Dosage: 100 MG, UNK
     Route: 048
     Dates: start: 2006, end: 2006
  4. HUMULIN NOS [Concomitant]
     Active Substance: INSULIN HUMAN
  5. INSULIN N (INSULIN HUMAN, ISOPHANE) [Concomitant]
  6. HUMALOG [Concomitant]
     Active Substance: INSULIN LISPRO
     Dosage: SLIDING SCALE
  7. LYRICA [Suspect]
     Active Substance: PREGABALIN
     Indication: NEUROPATHY PERIPHERAL
     Dosage: 50 MG, TWO TIMES A DAY
     Route: 048
     Dates: start: 2006
  8. LYRICA [Suspect]
     Active Substance: PREGABALIN
     Dosage: 75 MG, UNK
     Route: 048
  9. NEURONTIN [Suspect]
     Active Substance: GABAPENTIN
     Indication: NEUROPATHY PERIPHERAL
     Dosage: 25 ML, UNK
     Dates: start: 2006, end: 2006

REACTIONS (12)
  - Nervous system disorder [Recovering/Resolving]
  - Hepatic enzyme abnormal [Unknown]
  - Renal failure [Unknown]
  - Blood pressure abnormal [Not Recovered/Not Resolved]
  - Neuropathy peripheral [Recovering/Resolving]
  - Somnolence [Recovering/Resolving]
  - Dysarthria [Recovered/Resolved]
  - Dizziness [Not Recovered/Not Resolved]
  - Thought blocking [Recovering/Resolving]
  - Renal transplant [Recovered/Resolved]
  - Jaundice [Not Recovered/Not Resolved]
  - Tongue disorder [Recovered/Resolved]

NARRATIVE: CASE EVENT DATE: 2005
